FAERS Safety Report 8224178-7 (Version None)
Quarter: 2012Q1

REPORT INFORMATION
  Report Type: 
  Country: None (occurrence: None)
  Receive Date: 20120321
  Receipt Date: 20120314
  Transmission Date: 20120608
  Serious: Yes (Death, Hospitalization, Other)
  Sender: FDA-Public Use
  Company Number: US-BRISTOL-MYERS SQUIBB COMPANY-14216303

PATIENT
  Age: 88 Year
  Sex: Male

DRUGS (14)
  1. LASIX [Concomitant]
     Dates: start: 20080524
  2. METOPROLOL SUCCINATE [Concomitant]
     Dates: start: 20080524
  3. PREDNISONE [Concomitant]
     Dosage: ALSO 40MG
     Route: 048
     Dates: end: 20080521
  4. LEXAPRO [Concomitant]
     Dates: start: 20080525
  5. IPILIMUMAB [Suspect]
     Indication: MALIGNANT MELANOMA
     Route: 042
     Dates: start: 20071130, end: 20080519
  6. UROXATRAL [Concomitant]
  7. ANDROGEL [Concomitant]
     Dosage: DOSAGE FORM = INJECTION
     Dates: end: 20080521
  8. AVODART [Concomitant]
     Route: 048
  9. MAGNESIUM OXIDE [Concomitant]
     Dates: start: 20080527
  10. LEVOTHYROXINE SODIUM [Concomitant]
     Dosage: 1 TABLET DAILY
  11. AMIODARONE HYDROCHLORIDE [Concomitant]
     Dates: start: 20080528
  12. LEVAQUIN [Concomitant]
     Dates: start: 20080524
  13. METHIONINE [Concomitant]
     Dates: start: 20080524
  14. POTASSIUM CHLORIDE [Concomitant]
     Dates: start: 20080527

REACTIONS (4)
  - VENTRICULAR TACHYCARDIA [None]
  - PNEUMONIA [None]
  - PROCTITIS [None]
  - URINARY TRACT INFECTION [None]
